FAERS Safety Report 9127636 (Version 1)
Quarter: 2013Q1

REPORT INFORMATION
  Report Type: Spontaneous
  Country: US (occurrence: US)
  Receive Date: 20130228
  Receipt Date: 20130228
  Transmission Date: 20140127
  Serious: No
  Sender: FDA-Public Use
  Company Number: US-GLAXOSMITHKLINE-A0988954A

PATIENT
  Age: 29 Year
  Sex: Female

DRUGS (2)
  1. LAMICTAL [Suspect]
     Indication: BIPOLAR DISORDER
     Route: 048
     Dates: start: 20120625, end: 20120805
  2. NO CONCURRENT MEDICATION [Concomitant]

REACTIONS (10)
  - Anxiety [Not Recovered/Not Resolved]
  - Insomnia [Unknown]
  - Nausea [Unknown]
  - Crying [Unknown]
  - Weight decreased [Unknown]
  - Panic attack [Unknown]
  - Irritability [Unknown]
  - Chest pain [Unknown]
  - Thinking abnormal [Unknown]
  - Gastrooesophageal reflux disease [Unknown]
